FAERS Safety Report 9112641 (Version 1)
Quarter: 2013Q1

REPORT INFORMATION
  Report Type: Spontaneous
  Country: US (occurrence: US)
  Receive Date: 20130211
  Receipt Date: 20130211
  Transmission Date: 20140127
  Serious: No
  Sender: FDA-Public Use
  Company Number: US-BAYER-2013-017149

PATIENT
  Age: 74 Year
  Sex: Female

DRUGS (4)
  1. ALEVE CAPLET/TABLET,MIDOL EXTENDED RELIEF CAPLET [Suspect]
     Dosage: UNK UNK, PRN
     Route: 048
     Dates: start: 1995, end: 20130130
  2. ONE-A-DAY [MINERALS NOS,VITAMINS NOS] [Concomitant]
  3. CALCIUM [Concomitant]
  4. ALDAZIDE [Concomitant]

REACTIONS (2)
  - Pruritus [Recovered/Resolved]
  - Pruritus [Recovered/Resolved]
